FAERS Safety Report 6289621-1 (Version None)
Quarter: 2009Q3

REPORT INFORMATION
  Report Type: 
  Country: None (occurrence: None)
  Receive Date: 20090729
  Receipt Date: 20090729
  Transmission Date: 20100115
  Serious: Yes (Other)
  Sender: FDA-Public Use
  Company Number: None

PATIENT
  Sex: Male
  Weight: 99.7913 kg

DRUGS (1)
  1. MIRAPEX [Suspect]
     Indication: PARKINSON'S DISEASE
     Dates: end: 20080723

REACTIONS (9)
  - ABNORMAL DREAMS [None]
  - ANGER [None]
  - DISSOCIATION [None]
  - ECONOMIC PROBLEM [None]
  - PARTNER STRESS [None]
  - PATHOLOGICAL GAMBLING [None]
  - POOR QUALITY SLEEP [None]
  - SOCIAL AVOIDANT BEHAVIOUR [None]
  - SUDDEN ONSET OF SLEEP [None]
